FAERS Safety Report 22145843 (Version 1)
Quarter: 2023Q1

REPORT INFORMATION
  Report Type: Spontaneous
  Country: US (occurrence: None)
  Receive Date: 20230327
  Receipt Date: 20230327
  Transmission Date: 20230417
  Serious: No
  Sender: FDA-Public Use
  Company Number: None

PATIENT
  Age: 69 Year
  Sex: Male
  Weight: 68.27 kg

DRUGS (21)
  1. CAPECITABINE [Suspect]
     Active Substance: CAPECITABINE
     Indication: Pancreatic carcinoma
     Dosage: 1500MG TWICE A DAY ORAL?
     Route: 048
  2. ASPIRIN EC [Concomitant]
  3. ATORVASTATIN CALCIUM [Concomitant]
  4. CILOSTAZOL [Concomitant]
  5. DIPHENOXYLATE-ATROPINE [Concomitant]
  6. DULCOLAX [Concomitant]
  7. FARXIGA [Concomitant]
  8. GABAPENTIN [Concomitant]
  9. LISINOPRIL [Concomitant]
  10. LOPERAMIDE [Concomitant]
  11. LUBRICATING EYE DROPS OPHTHALMIC [Concomitant]
  12. MAG-OXIDE MARINOL [Concomitant]
  13. METFORMIN [Concomitant]
  14. PREGABALIN [Concomitant]
  15. PROCHLORPERAZINE MALEATE [Concomitant]
  16. RYBELSUS [Concomitant]
  17. SIMVASTATIN [Concomitant]
  18. SPIRIVA RESPIMAT [Concomitant]
  19. TRESIBA FLEXTOUCH [Concomitant]
  20. VITAMIN-B COMPLEX [Concomitant]
  21. ZOFRAN [Concomitant]

REACTIONS (2)
  - Pneumonia fungal [None]
  - Infection [None]
